FAERS Safety Report 4969456-X (Version None)
Quarter: 2006Q2

REPORT INFORMATION
  Report Type: 
  Country: None (occurrence: None)
  Receive Date: 20060406
  Receipt Date: 20060323
  Transmission Date: 20061013
  Serious: Yes (Disabling)
  Sender: FDA-Public Use
  Company Number: WAES 0603USA03873

PATIENT
  Age: 35 Year
  Sex: Male
  Weight: 81.6475 kg

DRUGS (15)
  1. CRIXIVAN [Suspect]
     Indication: HIV INFECTION
     Dosage: 1600 MG/DAILY/PO
     Route: 048
     Dates: start: 20051008
  2. [THERAPY UNSPECIFIED] 150 MG [Suspect]
     Indication: HIV INFECTION
     Dosage: 150 MG/BID/PO
     Route: 048
     Dates: start: 20051006
  3. RITONAVIR [Suspect]
     Indication: HIV INFECTION
     Dosage: 100 MG/BID/PO
     Route: 048
     Dates: start: 20050602
  4. DIDANOSINE [Suspect]
     Indication: HIV INFECTION
     Dosage: 250 MG/DAILY/PO
     Route: 048
     Dates: start: 20050602
  5. SUSTIVA [Suspect]
     Indication: HIV INFECTION
     Dosage: 600 MG/DAILY/PO
     Route: 048
     Dates: start: 20030807
  6. TRUVADA [Suspect]
     Indication: HIV INFECTION
     Dosage: 300/200 /DAILY/PO
     Route: 048
     Dates: start: 20050602
  7. AMBIEN [Concomitant]
  8. BACTRIM [Concomitant]
  9. EFFEXOR [Concomitant]
  10. SEROSTIM [Concomitant]
  11. VALTREX [Concomitant]
  12. ZITHROMAX [Concomitant]
  13. ALLPURINOL [Concomitant]
  14. LISINOPRIL [Concomitant]
  15. PSYLLIUM HUSK [Concomitant]

REACTIONS (3)
  - ARTHRALGIA [None]
  - GROIN PAIN [None]
  - OSTEONECROSIS [None]
